FAERS Safety Report 4386551-7 (Version None)
Quarter: 2004Q2

REPORT INFORMATION
  Report Type: 
  Country: None (occurrence: None)
  Receive Date: 20040623
  Receipt Date: 20040610
  Transmission Date: 20050107
  Serious: Yes (Disabling)
  Sender: FDA-Public Use
  Company Number: 2004010693

PATIENT
  Age: 73 Year
  Sex: Female
  Weight: 57 kg

DRUGS (1)
  1. ZOLOFT [Suspect]
     Indication: DEPRESSION
     Dosage: 50 MG (1 IN 1 D), ORAL
     Route: 048
     Dates: start: 20031128, end: 20040205

REACTIONS (7)
  - ANTICOAGULATION DRUG LEVEL ABOVE THERAPEUTIC [None]
  - EYE MOVEMENT DISORDER [None]
  - MACULAR DEGENERATION [None]
  - OPTIC ATROPHY [None]
  - OVERDOSE [None]
  - RETINAL HAEMORRHAGE [None]
  - VISION BLURRED [None]
